FAERS Safety Report 8358182-5 (Version None)
Quarter: 2012Q2

REPORT INFORMATION
  Report Type: 
  Country: None (occurrence: None)
  Receive Date: 20120514
  Receipt Date: 20120507
  Transmission Date: 20120825
  Serious: Yes (Other)
  Sender: FDA-Public Use
  Company Number: US-GLAXOSMITHKLINE-A0958653A

PATIENT
  Age: 70 Year
  Sex: Female

DRUGS (8)
  1. VITAMIN TAB [Concomitant]
  2. NAPROXEN (ALEVE) [Concomitant]
  3. ADVAIR DISKUS 100/50 [Suspect]
     Indication: ASTHMA
     Dosage: 1PUFF TWICE PER DAY
     Route: 055
     Dates: start: 20110701
  4. CLONAZEPAM [Concomitant]
  5. CRESTOR [Concomitant]
  6. AMLODIPINE BESYLATE [Concomitant]
  7. HYDROCHLOROTHIAZIDE [Concomitant]
  8. CALCIUM [Concomitant]

REACTIONS (3)
  - ASTHMA [None]
  - INCREASED UPPER AIRWAY SECRETION [None]
  - COUGH [None]
